FAERS Safety Report 4717214-3 (Version None)
Quarter: 2005Q3

REPORT INFORMATION
  Report Type: 
  Country: None (occurrence: None)
  Receive Date: 20050719
  Receipt Date: 20050713
  Transmission Date: 20060218
  Serious: Yes (Other)
  Sender: FDA-Public Use
  Company Number: PHNU2005DE02527

PATIENT
  Age: 47 Year
  Sex: Male

DRUGS (4)
  1. OLANZAPINE [Suspect]
     Dosage: 30 MG/DAY
     Route: 048
  2. ARIPIPRAZOLE [Suspect]
     Dosage: 10 MG/DAY
     Route: 048
  3. LEPONEX / CLOZARIL (CLOZAPINE) [Suspect]
     Indication: SCHIZOPHRENIA
     Route: 048
     Dates: start: 19930101, end: 20041201
  4. RISPERIDONE [Suspect]
     Dosage: 6 MG/DAY
     Route: 048

REACTIONS (6)
  - HODGKIN'S DISEASE [None]
  - LARYNGOSPASM [None]
  - LEUKOPENIA [None]
  - LYMPHADENOPATHY [None]
  - OCULOGYRATION [None]
  - PYREXIA [None]
